FAERS Safety Report 6193938-9 (Version None)
Quarter: 2009Q2

REPORT INFORMATION
  Report Type: 
  Country: None (occurrence: None)
  Receive Date: 20090518
  Receipt Date: 20090513
  Transmission Date: 20091009
  Serious: Yes (Other)
  Sender: FDA-Public Use
  Company Number: GB-TEVA-195068ISR

PATIENT
  Sex: Female

DRUGS (1)
  1. ALENDRONATE SODIUM [Suspect]
     Indication: OSTEOPOROSIS
     Route: 048
     Dates: start: 20071201, end: 20081101

REACTIONS (6)
  - ALTERED VISUAL DEPTH PERCEPTION [None]
  - EYE PAIN [None]
  - HEADACHE [None]
  - NIGHT BLINDNESS [None]
  - PHOTOPHOBIA [None]
  - VISION BLURRED [None]
